FAERS Safety Report 7935398-0 (Version None)
Quarter: 2011Q4

REPORT INFORMATION
  Report Type: 
  Country: None (occurrence: None)
  Receive Date: 20111122
  Receipt Date: 20111115
  Transmission Date: 20120403
  Serious: Yes (Life-Threatening, Hospitalization)
  Sender: FDA-Public Use
  Company Number: GB-MERCK-1111USA02037

PATIENT
  Age: 81 Year
  Sex: Male
  Weight: 60 kg

DRUGS (5)
  1. ONDANSETRON [Concomitant]
     Route: 042
  2. DECADRON [Suspect]
     Indication: MULTIPLE MYELOMA
     Route: 048
     Dates: start: 20110812, end: 20110823
  3. FUROSEMIDE [Concomitant]
     Route: 042
  4. VELCADE [Suspect]
     Indication: MULTIPLE MYELOMA
     Route: 042
     Dates: start: 20110812, end: 20110822
  5. VELCADE [Suspect]
     Route: 042

REACTIONS (2)
  - INFECTIOUS PERITONITIS [None]
  - PEPTIC ULCER PERFORATION [None]
